FAERS Safety Report 14774059 (Version 2)
Quarter: 2018Q2

REPORT INFORMATION
  Report Type: Spontaneous
  Country: KZ (occurrence: KZ)
  Receive Date: 20180418
  Receipt Date: 20180610
  Transmission Date: 20180711
  Serious: Yes (Other)
  Sender: FDA-Public Use
  Company Number: PHHY2018KZ066553

PATIENT
  Sex: Female

DRUGS (2)
  1. LINEX [Suspect]
     Active Substance: LACTOBACILLUS ACIDOPHILUS
     Indication: GASTROINTESTINAL DISORDER
     Dosage: UNK
     Route: 048
  2. LINEX [Suspect]
     Active Substance: LACTOBACILLUS ACIDOPHILUS
     Indication: ABDOMINAL PAIN UPPER

REACTIONS (2)
  - Drug ineffective [Unknown]
  - Pancreatitis [Recovering/Resolving]
